FAERS Safety Report 9846227 (Version 2)
Quarter: 2014Q1

REPORT INFORMATION
  Report Type: Spontaneous
  Country: CH (occurrence: CH)
  Receive Date: 20140127
  Receipt Date: 20140324
  Transmission Date: 20141002
  Serious: Yes (Life-Threatening)
  Sender: FDA-Public Use
  Company Number: CH-TEVA-457311ISR

PATIENT
  Age: 23 Year
  Sex: Male

DRUGS (2)
  1. ABILIFY [Suspect]
     Indication: SCHIZOPHRENIA, PARANOID TYPE
     Dosage: 15 MILLIGRAM DAILY; 1-0-0 (ONCE DAILY IN THE MORNING)
     Route: 065
  2. CITALOPRAM-MEPHA [Concomitant]
     Indication: SCHIZOPHRENIA, PARANOID TYPE
     Dosage: 20 MILLIGRAM DAILY; 1-0-0 (ONCE DAILY IN THE MORNING)
     Route: 065

REACTIONS (3)
  - Large intestine perforation [Recovering/Resolving]
  - Gastrointestinal necrosis [Recovering/Resolving]
  - Product physical issue [Recovering/Resolving]
